FAERS Safety Report 8087693-5 (Version None)
Quarter: 2012Q1

REPORT INFORMATION
  Report Type: 
  Country: None (occurrence: None)
  Receive Date: 20120128
  Receipt Date: 20110420
  Transmission Date: 20120608
  Serious: No
  Sender: FDA-Public Use
  Company Number: US-ABBOTT-11P-163-0721020-00

PATIENT
  Sex: Female
  Weight: 59.02 kg

DRUGS (5)
  1. FLOVENT [Concomitant]
     Indication: ASTHMA
     Dosage: DISC
  2. UNKNOWN VITAMINS [Concomitant]
     Indication: SUPPLEMENTATION THERAPY
  3. ACCOLATE [Concomitant]
     Indication: ASTHMA
  4. NASONEX [Concomitant]
     Indication: PRODUCT USED FOR UNKNOWN INDICATION
     Route: 045
  5. HUMIRA [Suspect]
     Indication: RHEUMATOID ARTHRITIS
     Dates: start: 20100501

REACTIONS (7)
  - SINUSITIS [None]
  - NASOPHARYNGITIS [None]
  - WHEEZING [None]
  - POOR QUALITY DRUG ADMINISTERED [None]
  - COUGH [None]
  - ASTHMA [None]
  - FATIGUE [None]
